FAERS Safety Report 8495969-2 (Version None)
Quarter: 2012Q3

REPORT INFORMATION
  Report Type: 
  Country: None (occurrence: None)
  Receive Date: 20120709
  Receipt Date: 20120629
  Transmission Date: 20120928
  Serious: Yes (Hospitalization, Other)
  Sender: FDA-Public Use
  Company Number: BE-GLAXOSMITHKLINE-B0809011A

PATIENT
  Sex: Male
  Weight: 73 kg

DRUGS (5)
  1. CARBOPLATIN [Suspect]
     Indication: TESTICULAR NEOPLASM
     Route: 042
     Dates: start: 20120417, end: 20120508
  2. ZOFRAN [Suspect]
     Route: 042
     Dates: start: 20120417, end: 20120508
  3. SOLU-MEDROL [Concomitant]
  4. ZOFRAN [Suspect]
     Indication: NAUSEA
     Dosage: 8MG TWICE PER DAY
     Route: 048
     Dates: start: 20120418, end: 20120511
  5. MEDROL [Concomitant]
     Indication: PROPHYLAXIS
     Dosage: 40MG PER DAY
     Dates: start: 20120417, end: 20120508

REACTIONS (12)
  - DIARRHOEA [None]
  - VOMITING [None]
  - COLITIS ISCHAEMIC [None]
  - RECTAL HAEMORRHAGE [None]
  - NAUSEA [None]
  - MUSCLE SPASMS [None]
  - DIARRHOEA HAEMORRHAGIC [None]
  - FAECALOMA [None]
  - ABDOMINAL SYMPTOM [None]
  - CONSTIPATION [None]
  - DECREASED APPETITE [None]
  - FEELING OF BODY TEMPERATURE CHANGE [None]
